FAERS Safety Report 16414366 (Version 2)
Quarter: 2019Q3

REPORT INFORMATION
  Report Type: Report from Study
  Country: None (occurrence: US)
  Receive Date: 20190611
  Receipt Date: 20190705
  Transmission Date: 20191004
  Serious: Yes (Hospitalization, Other)
  Sender: FDA-Public Use
  Company Number: US-ABBVIE-19K-163-2814847-00

PATIENT
  Age: 67 Year
  Sex: Female
  Weight: 67.19 kg

DRUGS (9)
  1. ALLOPURINOL. [Concomitant]
     Active Substance: ALLOPURINOL
     Indication: GOUT
  2. TYLENOL [Concomitant]
     Active Substance: ACETAMINOPHEN
     Indication: INFLAMMATION
  3. FENOFIBRATE. [Concomitant]
     Active Substance: FENOFIBRATE
     Indication: BLOOD TRIGLYCERIDES
  4. MOBIC [Concomitant]
     Active Substance: MELOXICAM
     Indication: INFLAMMATION
  5. HUMIRA [Suspect]
     Active Substance: ADALIMUMAB
     Indication: RHEUMATOID ARTHRITIS
     Route: 058
     Dates: start: 2009
  6. TYLENOL [Concomitant]
     Active Substance: ACETAMINOPHEN
     Indication: PAIN
  7. TRIAMTERENE HCTZ [Concomitant]
     Active Substance: HYDROCHLOROTHIAZIDE\TRIAMTERENE
     Indication: DIURETIC THERAPY
  8. OMEPRAZOLE. [Concomitant]
     Active Substance: OMEPRAZOLE
     Indication: DYSPEPSIA
  9. METHOTREXATE. [Concomitant]
     Active Substance: METHOTREXATE
     Indication: RHEUMATOID ARTHRITIS

REACTIONS (3)
  - Cataract [Unknown]
  - Cataract [Unknown]
  - Uterine prolapse [Recovered/Resolved]

NARRATIVE: CASE EVENT DATE: 2014
